FAERS Safety Report 7313906-0 (Version None)
Quarter: 2011Q1

REPORT INFORMATION
  Report Type: 
  Country: None (occurrence: None)
  Receive Date: 20110225
  Receipt Date: 20110213
  Transmission Date: 20110831
  Serious: Yes (Other)
  Sender: FDA-Public Use
  Company Number: IL-SANOFI-AVENTIS-2011SA009431

PATIENT
  Age: 78 Year
  Sex: Male

DRUGS (5)
  1. MULTAQ [Suspect]
     Route: 048
     Dates: start: 20101001, end: 20110101
  2. ALL OTHER THERAPEUTIC PRODUCTS [Concomitant]
  3. BETA BLOCKING AGENTS [Concomitant]
  4. WARFARIN SODIUM [Interacting]
     Dates: end: 20110101
  5. ALL OTHER THERAPEUTIC PRODUCTS [Concomitant]

REACTIONS (5)
  - HEPATOCELLULAR INJURY [None]
  - LIVER FUNCTION TEST ABNORMAL [None]
  - INTERNATIONAL NORMALISED RATIO INCREASED [None]
  - DRUG INTERACTION [None]
  - PANCREATIC CARCINOMA [None]
